FAERS Safety Report 4623022-4 (Version None)
Quarter: 2005Q1

REPORT INFORMATION
  Report Type: 
  Country: None (occurrence: None)
  Receive Date: 20050329
  Receipt Date: 20050317
  Transmission Date: 20050727
  Serious: Yes (Other)
  Sender: FDA-Public Use
  Company Number: 200502256

PATIENT
  Sex: Female

DRUGS (1)
  1. BOTOX [Suspect]
     Indication: SKIN WRINKLING

REACTIONS (3)
  - BLINDNESS UNILATERAL [None]
  - OPTIC NERVE DISORDER [None]
  - OPTIC NEURITIS [None]
